FAERS Safety Report 10052375 (Version 1)
Quarter: 2014Q2

REPORT INFORMATION
  Report Type: Spontaneous
  Country: BR (occurrence: BR)
  Receive Date: 20140402
  Receipt Date: 20140402
  Transmission Date: 20141212
  Serious: Yes (Life-Threatening, Hospitalization)
  Sender: FDA-Public Use
  Company Number: BR-JNJFOC-20140400705

PATIENT
  Sex: Female
  Weight: 70 kg

DRUGS (2)
  1. XARELTO [Suspect]
     Indication: EMBOLISM VENOUS
     Dosage: DRUG STOPPED IN 2014
     Route: 048
     Dates: start: 2014
  2. XARELTO [Suspect]
     Indication: DEEP VEIN THROMBOSIS
     Dosage: DRUG STOPPED IN 2014
     Route: 048
     Dates: start: 2014

REACTIONS (2)
  - Angina pectoris [Recovered/Resolved]
  - Incorrect dose administered [Unknown]
